FAERS Safety Report 4859710-4 (Version None)
Quarter: 2005Q4

REPORT INFORMATION
  Report Type: 
  Country: None (occurrence: None)
  Receive Date: 20051219
  Receipt Date: 20051209
  Transmission Date: 20060501
  Serious: Yes (Other)
  Sender: FDA-Public Use
  Company Number: CA-BRISTOL-MYERS SQUIBB COMPANY-13217138

PATIENT
  Age: 84 Year
  Sex: Female

DRUGS (15)
  1. TEQUIN [Suspect]
     Route: 042
  2. DIABETA [Suspect]
  3. ALLOPURINOL [Concomitant]
  4. COMBIVENT [Concomitant]
     Route: 055
  5. COZAAR [Concomitant]
  6. ELAVIL [Concomitant]
  7. FLOVENT [Concomitant]
     Route: 055
  8. HYDROCHLOROTHIAZIDE [Concomitant]
  9. IMDUR [Concomitant]
  10. LECTOPAM TAB [Concomitant]
  11. LIPITOR [Concomitant]
  12. MOGADON [Concomitant]
  13. NORVASC [Concomitant]
  14. PLAVIX [Concomitant]
  15. QUININE [Concomitant]

REACTIONS (1)
  - HYPOGLYCAEMIA [None]
